FAERS Safety Report 22955809 (Version 5)
Quarter: 2023Q4

REPORT INFORMATION
  Report Type: Report from Study
  Country: KR (occurrence: KR)
  Receive Date: 20230919
  Receipt Date: 20231128
  Transmission Date: 20240110
  Serious: Yes (Hospitalization)
  Sender: FDA-Public Use
  Company Number: KR-PFIZER INC-PV202300153178

PATIENT
  Age: 70 Year
  Sex: Male
  Weight: 71.5 kg

DRUGS (10)
  1. DARATUMUMAB [Suspect]
     Active Substance: DARATUMUMAB
     Indication: Plasma cell myeloma
     Dosage: 1800 MG, EVERY 2 WEEKS
     Route: 058
     Dates: start: 20230829, end: 20230829
  2. ELRANATAMAB [Suspect]
     Active Substance: ELRANATAMAB
     Indication: Plasma cell myeloma
     Dosage: 76 MG, Q2W
     Route: 058
     Dates: start: 20230829, end: 20230829
  3. LENALIDOMIDE [Suspect]
     Active Substance: LENALIDOMIDE
     Indication: Plasma cell myeloma
     Dosage: 25 MG, QD DAYS 1-21 EACH 28-DAY
     Route: 048
     Dates: start: 20230829, end: 20230906
  4. DEXAMETHASONE [Suspect]
     Active Substance: DEXAMETHASONE
     Indication: Prophylaxis
     Dosage: 20 MG FOR EVERY IP PREMEDICATION, INJECTION
     Route: 042
     Dates: start: 20230618, end: 20230829
  5. ACETAMINOPHEN [Suspect]
     Active Substance: ACETAMINOPHEN
     Indication: Prophylaxis
     Dosage: SETOPEN, 750 MG FOR EVERY IP PREMEDICATION
     Route: 048
     Dates: start: 20230618, end: 20230829
  6. DIETARY SUPPLEMENT\HERBALS\MILK THISTLE [Concomitant]
     Active Substance: MILK THISTLE
     Indication: Hepatic enzyme increased
     Dosage: 140 MG, 2X/DAY
     Route: 048
     Dates: start: 20230627, end: 20230906
  7. VALTRA [VALACICLOVIR HYDROCHLORIDE] [Concomitant]
     Indication: Prophylaxis
     Dosage: 500 MG, 1X/DAY
     Route: 048
     Dates: start: 20230620
  8. SULFAMETHOXAZOLE\TRIMETHOPRIM [Concomitant]
     Active Substance: SULFAMETHOXAZOLE\TRIMETHOPRIM
     Indication: Prophylaxis
     Dosage: 480 MG, 1X/DAY
     Route: 048
     Dates: start: 20230620
  9. LYRICA [Concomitant]
     Active Substance: PREGABALIN
     Indication: Peripheral sensory neuropathy
     Dosage: 50 MG, 2X/DAY
     Route: 048
     Dates: start: 20230627
  10. CHLORPHENIRAMINE MALEATE [Concomitant]
     Active Substance: CHLORPHENIRAMINE MALEATE
     Indication: Prophylaxis
     Dosage: 2 ML FOR EVERY IP PREMEDICATION
     Route: 042
     Dates: start: 20230618, end: 20230829

REACTIONS (1)
  - COVID-19 [Recovered/Resolved]

NARRATIVE: CASE EVENT DATE: 20230903
